FAERS Safety Report 15706708 (Version 1)
Quarter: 2018Q4

REPORT INFORMATION
  Report Type: Spontaneous
  Country: US (occurrence: US)
  Receive Date: 20181210
  Receipt Date: 20181210
  Transmission Date: 20190205
  Serious: No
  Sender: FDA-Public Use
  Company Number: US-SPROUT PHARMACEUTICALS, INC.-2018SP000371

PATIENT
  Sex: Female

DRUGS (3)
  1. ADDYI [Suspect]
     Active Substance: FLIBANSERIN
  2. ADDYI [Suspect]
     Active Substance: FLIBANSERIN
     Indication: PRODUCT USED FOR UNKNOWN INDICATION
     Dates: start: 201808
  3. LIDOCAINE. [Suspect]
     Active Substance: LIDOCAINE
     Indication: OESOPHAGEAL PAIN
     Route: 048

REACTIONS (9)
  - Headache [Not Recovered/Not Resolved]
  - Blood pressure decreased [Unknown]
  - Heart rate increased [Unknown]
  - Hypoaesthesia oral [Unknown]
  - Throat irritation [Unknown]
  - Chest pain [Not Recovered/Not Resolved]
  - Oesophageal pain [Not Recovered/Not Resolved]
  - Palpitations [Not Recovered/Not Resolved]
  - Somnolence [Unknown]

NARRATIVE: CASE EVENT DATE: 2018
